FAERS Safety Report 9614586 (Version 1)
Quarter: 2013Q4

REPORT INFORMATION
  Report Type: Spontaneous
  Country: FR (occurrence: FR)
  Receive Date: 20131011
  Receipt Date: 20131011
  Transmission Date: 20140711
  Serious: Yes (Hospitalization)
  Sender: FDA-Public Use
  Company Number: PHHY2013FR113887

PATIENT
  Age: 60 Year
  Sex: Male

DRUGS (12)
  1. TEGRETOL [Suspect]
     Indication: TRIGEMINAL NEURALGIA
     Dosage: 400 MG, TID
  2. TEGRETOL [Suspect]
     Dosage: 200 MG, TID
  3. BYETTA [Concomitant]
     Indication: TYPE 2 DIABETES MELLITUS
     Dosage: 5 UKN, BID
     Route: 042
  4. INSPRA [Concomitant]
     Indication: HYPERTENSION
     Dosage: 25 MG, QD
     Route: 048
  5. DAONIL [Concomitant]
     Indication: TYPE 2 DIABETES MELLITUS
     Dosage: 5 MG, QD
     Route: 048
  6. PLAVIX [Concomitant]
     Indication: ISCHAEMIC STROKE
     Dosage: 75 MG, QD
     Route: 048
  7. LERCANIDIPINE [Concomitant]
     Indication: HYPERTENSION
     Dosage: 10 UKN, QD
     Route: 048
  8. ESOMEPRAZOLE [Concomitant]
     Dosage: 40 UKN, QD
     Route: 048
  9. DIOSMIN [Concomitant]
     Dosage: 600 UKN, BID
     Route: 048
  10. MAG 2 [Concomitant]
     Dosage: UNK UKN, TID
     Route: 048
  11. VENTOLINE [Concomitant]
     Dosage: UNK UKN, PRN
     Route: 045
  12. RAMIPRIL [Concomitant]
     Indication: HYPERTENSION
     Dosage: 5 UKN, QD

REACTIONS (2)
  - Hepatocellular injury [Recovering/Resolving]
  - Cholestasis [Recovering/Resolving]
